FAERS Safety Report 8957353 (Version 1)
Quarter: 2012Q4

REPORT INFORMATION
  Report Type: 
  Country: JP (occurrence: JP)
  Receive Date: 20121211
  Receipt Date: 20121211
  Transmission Date: 20130627
  Serious: Yes (Other)
  Sender: FDA-Public Use
  Company Number: PHHY2012JP112290

PATIENT

DRUGS (4)
  1. EXELON PATCH [Suspect]
     Dosage: 4.5 mg, Daily
     Route: 062
  2. EXELON PATCH [Suspect]
     Dosage: 9 mg, Daily
     Route: 062
  3. EXELON PATCH [Suspect]
     Dosage: 13.5 mg, Daily
     Route: 062
  4. EXELON PATCH [Suspect]
     Dosage: 18 mg, Daily
     Route: 062

REACTIONS (8)
  - Dementia [Unknown]
  - Behavioural and psychiatric symptoms of dementia [Unknown]
  - Restlessness [Unknown]
  - Abnormal behaviour [Unknown]
  - Crying [Unknown]
  - Feeling abnormal [Unknown]
  - Drug prescribing error [Unknown]
  - Wrong technique in drug usage process [Unknown]
